FAERS Safety Report 9656131 (Version 2)
Quarter: 2013Q4

REPORT INFORMATION
  Report Type: Report from Study
  Country: JP (occurrence: JP)
  Receive Date: 20131030
  Receipt Date: 20131223
  Transmission Date: 20140711
  Serious: Yes (Hospitalization)
  Sender: FDA-Public Use
  Company Number: PHHY2013JP121510

PATIENT
  Age: 60 Year
  Sex: Female

DRUGS (20)
  1. FTY 720 [Suspect]
     Indication: MULTIPLE SCLEROSIS
     Dosage: 0.5 MG, QD
     Route: 048
     Dates: start: 20120425, end: 20121226
  2. PREDNISOLONE [Concomitant]
     Dosage: 60 MG, UNK
     Route: 048
     Dates: start: 20120412
  3. PREDNISOLONE [Concomitant]
     Dosage: 50 MG, UNK
     Route: 048
  4. PREDNISOLONE [Concomitant]
     Dosage: 50 MG, UNK
     Route: 048
     Dates: start: 20120417
  5. PREDNISOLONE [Concomitant]
     Dosage: 40 MG, UNK
     Route: 048
  6. PREDNISOLONE [Concomitant]
     Dosage: 30 MG, UNK
     Route: 048
     Dates: start: 20120421
  7. PREDNISOLONE [Concomitant]
     Dosage: 20 MG, UNK
     Route: 048
  8. PREDNISOLONE [Concomitant]
     Dosage: 15 MG, UNK
     Route: 048
  9. PREDNISOLONE [Concomitant]
     Dosage: 10 MG, UNK
     Route: 048
     Dates: start: 20120508
  10. PREDNISOLONE [Concomitant]
     Dosage: 5 MG, UNK
     Route: 048
     Dates: start: 20120605
  11. PREDNISOLONE [Concomitant]
     Dosage: 0.25 MG, UNK
     Route: 048
     Dates: start: 20120619, end: 20120702
  12. DEPAS [Concomitant]
     Dosage: 0.5 MG, UNK
     Route: 048
  13. SENNOSIDE [Concomitant]
     Dosage: 36 MG, UNK
     Route: 048
  14. GASTER [Concomitant]
     Dosage: 10 MG, UNK
     Route: 048
  15. TRYPTANOL [Concomitant]
     Dosage: 10 MG, UNK
     Route: 048
  16. BUP-4 [Concomitant]
     Dosage: 10 MG, UNK
     Route: 048
  17. MAGNESIUM OXIDE [Concomitant]
     Dosage: 1 G, UNK
     Route: 048
  18. FOSAMAC [Concomitant]
     Dosage: 35 MG, QW
     Route: 048
  19. ALDACTONE A [Concomitant]
     Dosage: 25 MG, UNK
     Route: 048
  20. FUROSEMIDE [Concomitant]
     Dosage: 10 MG, UNK
     Route: 048

REACTIONS (2)
  - Hepatic function abnormal [Recovered/Resolved]
  - Lymphocyte count decreased [Recovered/Resolved]
